FAERS Safety Report 23304793 (Version 1)
Quarter: 2023Q4

REPORT INFORMATION
  Report Type: Spontaneous
  Country: US (occurrence: US)
  Receive Date: 20231218
  Receipt Date: 20231218
  Transmission Date: 20240109
  Serious: No
  Sender: FDA-Public Use
  Company Number: US-HALEON-USCH2023062495

PATIENT

DRUGS (1)
  1. FLONASE NIGHTTIME ALLERGY RELIEF [Suspect]
     Active Substance: TRIPROLIDINE HYDROCHLORIDE
     Indication: Multiple allergies
     Dosage: UNK

REACTIONS (1)
  - Somnolence [Unknown]
